FAERS Safety Report 23055041 (Version 1)
Quarter: 2023Q4

REPORT INFORMATION
  Report Type: Spontaneous
  Country: US (occurrence: US)
  Receive Date: 20231011
  Receipt Date: 20231011
  Transmission Date: 20240110
  Serious: No
  Sender: FDA-Public Use
  Company Number: US-AMGEN-USASP2023178759

PATIENT
  Age: 52 Year
  Sex: Female

DRUGS (1)
  1. REPATHA [Suspect]
     Active Substance: EVOLOCUMAB
     Indication: Blood cholesterol abnormal
     Dosage: 140 MILLIGRAM, Q2WK
     Route: 065
     Dates: start: 202307

REACTIONS (6)
  - Blood pressure increased [Not Recovered/Not Resolved]
  - Swollen tongue [Not Recovered/Not Resolved]
  - Headache [Not Recovered/Not Resolved]
  - Upper respiratory tract infection [Recovering/Resolving]
  - Injection site discolouration [Not Recovered/Not Resolved]
  - Device difficult to use [Unknown]

NARRATIVE: CASE EVENT DATE: 20230920
